FAERS Safety Report 4909868-3 (Version None)
Quarter: 2006Q1

REPORT INFORMATION
  Report Type: 
  Country: None (occurrence: None)
  Receive Date: 20060209
  Receipt Date: 20060127
  Transmission Date: 20060701
  Serious: Yes (Death)
  Sender: FDA-Public Use
  Company Number: L05-USA-03935-54

PATIENT
  Age: 48 Year
  Sex: Female

DRUGS (4)
  1. POTASSIUM CHLORIDE [Suspect]
  2. AMITRIPTYLINE HCL [Suspect]
  3. NEURONTIN [Suspect]
  4. PANTOPRAZOLE [Concomitant]

REACTIONS (8)
  - ANTICHOLINERGIC SYNDROME [None]
  - BLOOD PRESSURE DECREASED [None]
  - BLOOD PRESSURE SYSTOLIC INCREASED [None]
  - COMPLETED SUICIDE [None]
  - CONVULSION [None]
  - ELECTROCARDIOGRAM QRS COMPLEX PROLONGED [None]
  - MULTIPLE DRUG OVERDOSE INTENTIONAL [None]
  - VENTRICULAR TACHYCARDIA [None]
